FAERS Safety Report 13280788 (Version 10)
Quarter: 2018Q4

REPORT INFORMATION
  Report Type: Report from Study
  Country: None (occurrence: US)
  Receive Date: 20170301
  Receipt Date: 20181206
  Transmission Date: 20190204
  Serious: Yes (Hospitalization, Other)
  Sender: FDA-Public Use
  Company Number: US-ABBVIE-17K-163-1887255-00

PATIENT
  Age: 64 Year
  Sex: Female
  Weight: 65.38 kg

DRUGS (16)
  1. BENADRYL [Concomitant]
     Active Substance: DIPHENHYDRAMINE HYDROCHLORIDE
     Indication: SEASONAL ALLERGY
  2. FLEXERIL [Concomitant]
     Active Substance: CYCLOBENZAPRINE HYDROCHLORIDE
     Indication: MUSCLE SPASMS
  3. IPRATROPIUM BROMIDE AND ALBUTEROL SULFATE [Concomitant]
     Active Substance: ALBUTEROL SULFATE\IPRATROPIUM BROMIDE
     Indication: PRODUCT USED FOR UNKNOWN INDICATION
  4. HUMIRA [Suspect]
     Active Substance: ADALIMUMAB
     Route: 058
  5. XANAX [Concomitant]
     Active Substance: ALPRAZOLAM
     Indication: PANIC ATTACK
  6. LISINOPRIL. [Concomitant]
     Active Substance: LISINOPRIL
     Indication: HYPERTENSION
  7. HYDROCODONE [Concomitant]
     Active Substance: HYDROCODONE
     Indication: RHEUMATOID ARTHRITIS
  8. PROAIR HFA [Concomitant]
     Active Substance: ALBUTEROL SULFATE
     Indication: ASTHMA
  9. VICODIN [Concomitant]
     Active Substance: ACETAMINOPHEN\HYDROCODONE BITARTRATE
     Indication: PRODUCT USED FOR UNKNOWN INDICATION
  10. PREDNISONE. [Suspect]
     Active Substance: PREDNISONE
     Indication: RHEUMATOID ARTHRITIS
     Route: 065
  11. ATORVASTATIN [Concomitant]
     Active Substance: ATORVASTATIN
     Indication: HYPERLIPIDAEMIA
  12. METOPROLOL. [Concomitant]
     Active Substance: METOPROLOL
     Indication: PRODUCT USED FOR UNKNOWN INDICATION
  13. ASPIRIN. [Concomitant]
     Active Substance: ASPIRIN
     Indication: PRODUCT USED FOR UNKNOWN INDICATION
  14. HUMIRA [Suspect]
     Active Substance: ADALIMUMAB
     Indication: RHEUMATOID ARTHRITIS
     Route: 058
     Dates: start: 20150717
  15. VITAMIN D [Concomitant]
     Active Substance: CHOLECALCIFEROL
     Indication: PRODUCT USED FOR UNKNOWN INDICATION
  16. FLEXERIL [Concomitant]
     Active Substance: CYCLOBENZAPRINE HYDROCHLORIDE
     Indication: PRODUCT USED FOR UNKNOWN INDICATION

REACTIONS (57)
  - Pain in extremity [Unknown]
  - Fatigue [Recovered/Resolved]
  - Trigger finger [Unknown]
  - Asthma [Not Recovered/Not Resolved]
  - Fatigue [Not Recovered/Not Resolved]
  - Rib fracture [Unknown]
  - Limb discomfort [Not Recovered/Not Resolved]
  - Injection site haemorrhage [Recovering/Resolving]
  - Bronchitis [Recovering/Resolving]
  - Arthralgia [Unknown]
  - Pneumonia [Recovered/Resolved]
  - Asthma [Recovered/Resolved]
  - Blood cholesterol abnormal [Not Recovered/Not Resolved]
  - Malaise [Unknown]
  - Renal disorder [Unknown]
  - Weight decreased [Unknown]
  - Road traffic accident [Unknown]
  - Fall [Unknown]
  - Neck pain [Unknown]
  - Pain in extremity [Recovering/Resolving]
  - Hypertension [Recovering/Resolving]
  - Injection site pain [Unknown]
  - Oral infection [Recovered/Resolved]
  - Tooth extraction [Unknown]
  - Mouth swelling [Unknown]
  - Nodule [Unknown]
  - Nasopharyngitis [Unknown]
  - Insomnia [Not Recovered/Not Resolved]
  - Swelling [Unknown]
  - Visual impairment [Not Recovered/Not Resolved]
  - Oedema peripheral [Unknown]
  - Therapeutic response shortened [Not Recovered/Not Resolved]
  - Blindness [Unknown]
  - Eye disorder [Recovered/Resolved]
  - Foreign body in respiratory tract [Unknown]
  - Sensitivity to weather change [Unknown]
  - Carpal tunnel syndrome [Unknown]
  - Rheumatoid arthritis [Unknown]
  - Inflammation [Unknown]
  - Palpitations [Not Recovered/Not Resolved]
  - Muscle spasms [Unknown]
  - Bone pain [Unknown]
  - Coccydynia [Unknown]
  - Hypersensitivity [Unknown]
  - Device breakage [Unknown]
  - Dizziness [Unknown]
  - Respiratory disorder [Unknown]
  - Joint lock [Not Recovered/Not Resolved]
  - Fall [Recovered/Resolved]
  - Arthritis [Unknown]
  - Arthritis [Recovering/Resolving]
  - Dysphagia [Unknown]
  - Back pain [Recovering/Resolving]
  - Abdominal discomfort [Unknown]
  - Fall [Not Recovered/Not Resolved]
  - Musculoskeletal pain [Recovering/Resolving]
  - Headache [Unknown]

NARRATIVE: CASE EVENT DATE: 2015
